FAERS Safety Report 5157978-0 (Version None)
Quarter: 2006Q4

REPORT INFORMATION
  Report Type: 
  Country: None (occurrence: None)
  Receive Date: 20061127
  Receipt Date: 20060703
  Transmission Date: 20070319
  Serious: Yes (Death, Hospitalization, Disabling)
  Sender: FDA-Public Use
  Company Number: US-NOVOPROD-254601

PATIENT
  Sex: Female
  Weight: 59 kg

DRUGS (4)
  1. NOVOSEVEN [Suspect]
     Indication: CEREBRAL HAEMORRHAGE
     Dosage: 1 DOSE
     Route: 042
     Dates: start: 20060625, end: 20060625
  2. ONDANSETRON [Concomitant]
     Indication: VOMITING
     Dosage: 4 MG, QD
     Route: 042
     Dates: start: 20060625
  3. ACETAMINOPHEN [Concomitant]
     Indication: PYREXIA
     Dosage: 650 MG, QD
     Route: 048
     Dates: start: 20060627, end: 20060627
  4. PHENYTOIN SODIUM CAP [Concomitant]
     Indication: CONVULSION
     Route: 042

REACTIONS (7)
  - BLOOD PRESSURE INCREASED [None]
  - CEREBRAL HAEMORRHAGE [None]
  - DISEASE PROGRESSION [None]
  - INCOHERENT [None]
  - NEUROLOGICAL SYMPTOM [None]
  - OEDEMA [None]
  - STRIDOR [None]
